FAERS Safety Report 23812091 (Version 1)
Quarter: 2024Q2

REPORT INFORMATION
  Report Type: Spontaneous
  Country: US (occurrence: US)
  Receive Date: 20240503
  Receipt Date: 20240503
  Transmission Date: 20240716
  Serious: No
  Sender: FDA-Public Use
  Company Number: US-UCBSA-2023034328

PATIENT
  Sex: Female
  Weight: 68.027 kg

DRUGS (1)
  1. CIMZIA [Suspect]
     Active Substance: CERTOLIZUMAB PEGOL
     Indication: Ankylosing spondylitis
     Dosage: 200 MILLIGRAM PER MILLILITRE, EV 2 WEEKS(QOW)
     Route: 058

REACTIONS (2)
  - Nausea [Unknown]
  - Vomiting [Unknown]
